FAERS Safety Report 25368413 (Version 1)
Quarter: 2025Q2

REPORT INFORMATION
  Report Type: Spontaneous
  Country: IN (occurrence: IN)
  Receive Date: 20250528
  Receipt Date: 20250528
  Transmission Date: 20250717
  Serious: Yes (Other)
  Sender: MYLAN
  Company Number: IN-MYLANLABS-2025M1045260

PATIENT
  Age: 4 Decade
  Sex: Male

DRUGS (6)
  1. DEXAMETHASONE [Suspect]
     Active Substance: DEXAMETHASONE
     Indication: Deafness neurosensory
  2. PREDNISOLONE [Suspect]
     Active Substance: PREDNISOLONE
     Indication: Deafness neurosensory
     Dosage: 60 MILLIGRAM, QD
  3. PREDNISOLONE [Suspect]
     Active Substance: PREDNISOLONE
     Dosage: 40 MILLIGRAM, QD
  4. PREDNISOLONE [Suspect]
     Active Substance: PREDNISOLONE
     Dosage: 20 MILLIGRAM, QD
  5. PREDNISOLONE [Suspect]
     Active Substance: PREDNISOLONE
     Dosage: 10 MILLIGRAM, QD
  6. BETAHISTINE [Concomitant]
     Active Substance: BETAHISTINE
     Indication: Vertigo

REACTIONS (2)
  - Drug ineffective [Unknown]
  - Off label use [Unknown]
